FAERS Safety Report 7490149-1 (Version None)
Quarter: 2011Q2

REPORT INFORMATION
  Report Type: 
  Country: None (occurrence: None)
  Receive Date: 20110519
  Receipt Date: 20110516
  Transmission Date: 20111010
  Serious: No
  Sender: FDA-Public Use
  Company Number: US-PFIZER INC-2011105380

PATIENT

DRUGS (1)
  1. LYRICA [Suspect]

REACTIONS (1)
  - OEDEMA PERIPHERAL [None]
